FAERS Safety Report 15355533 (Version 1)
Quarter: 2018Q3

REPORT INFORMATION
  Report Type: Spontaneous
  Country: US (occurrence: US)
  Receive Date: 20180830
  Receipt Date: 20180830
  Transmission Date: 20181010
  Serious: No
  Sender: FDA-Public Use
  Company Number: None

PATIENT
  Age: 62 Year
  Sex: Female
  Weight: 72 kg

DRUGS (18)
  1. BRAFTOVI [Suspect]
     Active Substance: ENCORAFENIB
     Indication: MALIGNANT MELANOMA
     Route: 048
     Dates: start: 20180727
  2. CO?Q 10 [Concomitant]
     Active Substance: UBIDECARENONE
  3. MULTIVITAMIN [Concomitant]
     Active Substance: VITAMINS
  4. COTELLIC [Concomitant]
     Active Substance: COBIMETINIB
  5. DOXEPIN [Concomitant]
     Active Substance: DOXEPIN
  6. PROBIOTIC [Concomitant]
     Active Substance: PROBIOTICS NOS
  7. AMBIEN [Concomitant]
     Active Substance: ZOLPIDEM TARTRATE
  8. ZELBORAF [Concomitant]
     Active Substance: VEMURAFENIB
  9. VITAMIN C [Concomitant]
     Active Substance: ASCORBIC ACID
  10. CLOBETASOL [Concomitant]
     Active Substance: CLOBETASOL
  11. VITAMIN D [Concomitant]
     Active Substance: CHOLECALCIFEROL
  12. MEKTOVI [Suspect]
     Active Substance: BINIMETINIB
     Indication: MALIGNANT MELANOMA
     Route: 048
     Dates: start: 20180727
  13. BASAGLAR [Concomitant]
     Active Substance: INSULIN GLARGINE
  14. CLONAZEPAM. [Concomitant]
     Active Substance: CLONAZEPAM
  15. FUROSEMIDE. [Concomitant]
     Active Substance: FUROSEMIDE
  16. XARELTO [Concomitant]
     Active Substance: RIVAROXABAN
  17. HUMALOG [Concomitant]
     Active Substance: INSULIN LISPRO
  18. CLOBETASOL [Concomitant]
     Active Substance: CLOBETASOL

REACTIONS (4)
  - Nausea [None]
  - Arthralgia [None]
  - Myalgia [None]
  - Vomiting [None]

NARRATIVE: CASE EVENT DATE: 20180821
